FAERS Safety Report 6219148-4 (Version None)
Quarter: 2009Q2

REPORT INFORMATION
  Report Type: 
  Country: None (occurrence: None)
  Receive Date: 20090605
  Receipt Date: 20090605
  Transmission Date: 20091009
  Serious: Yes (Other)
  Sender: FDA-Public Use
  Company Number: None

PATIENT
  Age: 41 Year
  Sex: Female
  Weight: 79.3795 kg

DRUGS (1)
  1. LUTERA [Suspect]
     Indication: CONTRACEPTION
     Dosage: 1 PILL 1X DAY MOUTH ORAL 047
     Route: 048
     Dates: start: 20090518, end: 20090524

REACTIONS (11)
  - ABDOMINAL DISTENSION [None]
  - ABDOMINAL PAIN UPPER [None]
  - ANOREXIA [None]
  - CHROMATURIA [None]
  - GASTROINTESTINAL PAIN [None]
  - GASTROOESOPHAGEAL REFLUX DISEASE [None]
  - HEADACHE [None]
  - OSTEOARTHRITIS [None]
  - PRODUCT SUBSTITUTION ISSUE [None]
  - VOMITING [None]
  - WEIGHT DECREASED [None]
